FAERS Safety Report 9601399 (Version 1)
Quarter: 2013Q4

REPORT INFORMATION
  Report Type: Spontaneous
  Country: AR (occurrence: AR)
  Receive Date: 20131007
  Receipt Date: 20131007
  Transmission Date: 20140711
  Serious: Yes (Other)
  Sender: FDA-Public Use
  Company Number: AR-BIOGENIDEC-2013BI094118

PATIENT
  Sex: Female

DRUGS (1)
  1. AVONEX [Suspect]
     Indication: MULTIPLE SCLEROSIS
     Route: 030
     Dates: start: 201212

REACTIONS (1)
  - Drug-induced liver injury [Not Recovered/Not Resolved]
